FAERS Safety Report 16740980 (Version 1)
Quarter: 2019Q3

REPORT INFORMATION
  Report Type: Spontaneous
  Country: US (occurrence: US)
  Receive Date: 20190709
  Receipt Date: 20190709
  Transmission Date: 20191005
  Serious: Yes (Other)
  Sender: FDA-Public Use
  Company Number: None

PATIENT
  Age: 60 Year
  Sex: Female
  Weight: 67.13 kg

DRUGS (30)
  1. AZELISTINE [Concomitant]
  2. GELITINE VITAMINS MULTI [Concomitant]
  3. CHLORANX [Concomitant]
  4. TOLNAFTATE 1% ANTIFUNGAL [Concomitant]
  5. CHEWABLE ULTRA STRENGTH ANTIACID [Concomitant]
  6. ANTI-ACID [Concomitant]
  7. VICODIN [Concomitant]
     Active Substance: ACETAMINOPHEN\HYDROCODONE BITARTRATE
  8. URISTATE [Concomitant]
  9. BETIDINE [Concomitant]
  10. ANTI-ACIDS [Concomitant]
  11. SILVER VITAMINS [Concomitant]
  12. RITIDINTINE [Concomitant]
  13. GREAT CLEANERS [Concomitant]
  14. AZO [Concomitant]
     Active Substance: PHENAZOPYRIDINE HYDROCHLORIDE
  15. PEROZIDE [Concomitant]
  16. NASAL CORT [Concomitant]
  17. CODINE [Concomitant]
     Active Substance: CODEINE
  18. SOMA [Concomitant]
     Active Substance: CARISOPRODOL
  19. THE ORIGINAL NATURAL HERB COUGH DROPS [Concomitant]
     Active Substance: MENTHOL
  20. TRIPLE ANTI-BIOTICS [Concomitant]
  21. TRAMADOL. [Concomitant]
     Active Substance: TRAMADOL
  22. HALLS [Concomitant]
     Active Substance: MENTHOL
  23. AZELASTINE HCL 0.1% 30ML [Suspect]
     Active Substance: AZELASTINE
     Indication: HYPERSENSITIVITY
     Dosage: ?          QUANTITY:0.1%-137UG;?
     Route: 055
  24. NORCO [Concomitant]
     Active Substance: ACETAMINOPHEN\HYDROCODONE BITARTRATE
  25. ECENTIA TEA (RICOLA) [Concomitant]
  26. IBUPROPHEN [Concomitant]
     Active Substance: IBUPROFEN
  27. ALLI [Concomitant]
     Active Substance: ORLISTAT
  28. FLONASE [Concomitant]
     Active Substance: FLUTICASONE PROPIONATE
  29. DAVOCET [Concomitant]
  30. MICOSATIN [Concomitant]

REACTIONS (5)
  - Angina pectoris [None]
  - Emergency care [None]
  - Gastric pH decreased [None]
  - Dyspnoea [None]
  - Accident [None]

NARRATIVE: CASE EVENT DATE: 20190611
